FAERS Safety Report 18151377 (Version 5)
Quarter: 2023Q1

REPORT INFORMATION
  Report Type: Report from Study
  Country: US (occurrence: US)
  Receive Date: 20200814
  Receipt Date: 20230328
  Transmission Date: 20230418
  Serious: Yes (Hospitalization, Other)
  Sender: FDA-Public Use
  Company Number: US-009507513-1712USA008526

PATIENT
  Sex: Male
  Weight: 87.075 kg

DRUGS (24)
  1. PEMBROLIZUMAB [Suspect]
     Active Substance: PEMBROLIZUMAB
     Indication: Pancreatic carcinoma
     Dosage: 200 MG, Q3W
     Route: 041
     Dates: start: 201709, end: 201801
  2. PEMBROLIZUMAB [Suspect]
     Active Substance: PEMBROLIZUMAB
     Indication: Microsatellite instability cancer
     Dosage: 100 MG, Q3W
     Dates: start: 20180122
  3. PEMBROLIZUMAB [Suspect]
     Active Substance: PEMBROLIZUMAB
     Indication: Tumour necrosis
     Dosage: 200 MG, Q3W
     Dates: start: 20180326
  4. PEMBROLIZUMAB [Suspect]
     Active Substance: PEMBROLIZUMAB
     Dosage: UNK
     Dates: start: 20180507
  5. PEMBROLIZUMAB [Suspect]
     Active Substance: PEMBROLIZUMAB
     Dosage: 200 MG, Q3W
     Route: 042
     Dates: start: 20180813
  6. PEMBROLIZUMAB [Suspect]
     Active Substance: PEMBROLIZUMAB
     Dosage: 100 MG (EVERY  2 WEEKS)
     Dates: start: 201811
  7. PEMBROLIZUMAB [Suspect]
     Active Substance: PEMBROLIZUMAB
     Dosage: 50 MILLIGRAM (EVERY 2 WEEKS)
     Dates: start: 201903, end: 201906
  8. PEMBROLIZUMAB [Suspect]
     Active Substance: PEMBROLIZUMAB
     Dosage: 200 MILLIGRAM, Q3W; ROUTE OF ADMINISTRATION: PORT
     Dates: start: 20200827
  9. PROVENTIL [Suspect]
     Active Substance: ALBUTEROL
     Indication: Dyspnoea
     Dosage: UNK
     Dates: start: 2017
  10. PROVENTIL [Suspect]
     Active Substance: ALBUTEROL
     Indication: Cough
  11. OXALIPLATIN [Suspect]
     Active Substance: OXALIPLATIN
     Indication: Microsatellite instability cancer
     Dosage: UNK
     Route: 065
     Dates: start: 2017, end: 201707
  12. IRINOTECAN HYDROCHLORIDE [Suspect]
     Active Substance: IRINOTECAN HYDROCHLORIDE
     Indication: Microsatellite instability cancer
     Dosage: UNK
     Route: 065
     Dates: start: 2017, end: 201707
  13. FLUOROURACIL [Suspect]
     Active Substance: FLUOROURACIL
     Indication: Microsatellite instability cancer
     Dosage: UNK
     Route: 065
     Dates: start: 2017, end: 201707
  14. INSULIN NOS [Concomitant]
     Active Substance: INSULIN NOS
     Indication: Type 2 diabetes mellitus
     Dosage: UNK
  15. REPAGLINIDE [Concomitant]
     Active Substance: REPAGLINIDE
  16. NOVOLOG [Concomitant]
     Active Substance: INSULIN ASPART
     Dosage: 1-2 UNITS INJECTED 2-3 TIMES DAILY ^DEPENDING ON BLOOD SUGAR^
  17. PREDNISONE [Concomitant]
     Active Substance: PREDNISONE
  18. COLESEVELAM HYDROCHLORIDE [Concomitant]
     Active Substance: COLESEVELAM HYDROCHLORIDE
  19. LANTUS [Concomitant]
     Active Substance: INSULIN GLARGINE
     Indication: Diabetes mellitus
     Dosage: 18 DOSAGE FORM, HS (ONCE NIGHTLY AT 11 PM)
  20. HYDROCODONE [Concomitant]
     Active Substance: HYDROCODONE
     Indication: Pain
     Dosage: 5MG BY MOUTH 1-2 TIMES PER DAY AS NEEDED
     Route: 048
  21. ADVIL [Concomitant]
     Active Substance: IBUPROFEN
     Indication: Back pain
     Dosage: UNK UNK, PRN (1-2 TIMES DAILY AS NEEDED)
  22. GABAPENTIN [Concomitant]
     Active Substance: GABAPENTIN
     Indication: Sciatica
     Dosage: 300MG ONCE DAILY AS NEEDED
     Route: 048
  23. IBUPROFEN [Concomitant]
     Active Substance: IBUPROFEN
     Indication: Back pain
     Dosage: UNSPECIFIED DOSE AS NEEDED
  24. IBUPROFEN [Concomitant]
     Active Substance: IBUPROFEN
     Indication: Abdominal pain

REACTIONS (21)
  - Tumour necrosis [Not Recovered/Not Resolved]
  - Neuropathy peripheral [Unknown]
  - Adverse event [Unknown]
  - Organising pneumonia [Unknown]
  - Pneumonitis [Recovered/Resolved]
  - Pneumonitis [Recovered/Resolved]
  - Malignant neoplasm progression [Unknown]
  - Orthopnoea [Not Recovered/Not Resolved]
  - Weight increased [Unknown]
  - Weight fluctuation [Unknown]
  - Lymph node pain [Unknown]
  - Lymphocyte count abnormal [Unknown]
  - Oxygen consumption decreased [Recovering/Resolving]
  - Immune system disorder [Unknown]
  - Adverse event [Unknown]
  - Weight decreased [Recovering/Resolving]
  - Constipation [Unknown]
  - Cough [Not Recovered/Not Resolved]
  - Dyspnoea [Not Recovered/Not Resolved]
  - Product use in unapproved indication [Unknown]
  - Circumstance or information capable of leading to medication error [Unknown]

NARRATIVE: CASE EVENT DATE: 20170101
